FAERS Safety Report 6202942-3 (Version None)
Quarter: 2009Q2

REPORT INFORMATION
  Report Type: 
  Country: None (occurrence: None)
  Receive Date: 20090526
  Receipt Date: 20090512
  Transmission Date: 20091009
  Serious: Yes (Hospitalization)
  Sender: FDA-Public Use
  Company Number: JP-GENENTECH-281048

PATIENT
  Sex: Female

DRUGS (4)
  1. AVASTIN [Suspect]
     Indication: COLON CANCER METASTATIC
     Dosage: 5 MG/KG, Q2W
     Route: 041
  2. ELPLAT [Concomitant]
     Indication: COLON CANCER METASTATIC
     Dosage: UNK
     Dates: start: 20080818
  3. FLUOROURACIL [Concomitant]
     Indication: COLON CANCER METASTATIC
     Dosage: UNK
     Dates: start: 20080818
  4. ISOVORIN [Concomitant]
     Indication: COLON CANCER METASTATIC
     Dosage: UNK
     Dates: start: 20080818

REACTIONS (2)
  - GASTRIC ULCER [None]
  - HEPATIC FUNCTION ABNORMAL [None]
